FAERS Safety Report 5865843-6 (Version None)
Quarter: 2008Q3

REPORT INFORMATION
  Report Type: 
  Country: None (occurrence: None)
  Receive Date: 20080829
  Receipt Date: 20080822
  Transmission Date: 20090109
  Serious: Yes (Other)
  Sender: FDA-Public Use
  Company Number: US-BAYER-200813497BCC

PATIENT
  Age: 59 Year
  Sex: Male
  Weight: 159 kg

DRUGS (3)
  1. ASPIRIN [Suspect]
     Indication: ISCHAEMIC HEART DISEASE PROPHYLAXIS
     Dosage: TOTAL DAILY DOSE: 325 MG  UNIT DOSE: 325 MG
     Route: 048
     Dates: start: 20071201, end: 20080822
  2. TOPROL-XL [Concomitant]
  3. ISOSORBIDE [Concomitant]

REACTIONS (3)
  - BLOOD GLUCOSE INCREASED [None]
  - PROSTATE INFECTION [None]
  - URINARY TRACT INFECTION [None]
